FAERS Safety Report 5715761-9 (Version None)
Quarter: 2008Q2

REPORT INFORMATION
  Report Type: 
  Country: None (occurrence: None)
  Receive Date: 20080423
  Receipt Date: 20080423
  Transmission Date: 20081010
  Serious: Yes (Other)
  Sender: FDA-Public Use
  Company Number: None

PATIENT
  Age: 37 Year
  Sex: Male
  Weight: 95.2554 kg

DRUGS (2)
  1. BUPROPION HCL [Suspect]
     Indication: ANXIETY
     Dosage: 300 MG DAILY PO
     Route: 048
     Dates: start: 20071001, end: 20080115
  2. BUPROPION HCL [Suspect]
     Indication: DEPRESSION
     Dosage: 300 MG DAILY PO
     Route: 048
     Dates: start: 20071001, end: 20080115

REACTIONS (5)
  - CONSTIPATION [None]
  - DEPRESSION [None]
  - DYSGEUSIA [None]
  - HEADACHE [None]
  - THERAPEUTIC RESPONSE UNEXPECTED WITH DRUG SUBSTITUTION [None]
